FAERS Safety Report 19217517 (Version 2)
Quarter: 2021Q2

REPORT INFORMATION
  Report Type: Spontaneous
  Country: US (occurrence: US)
  Receive Date: 20210505
  Receipt Date: 20210608
  Transmission Date: 20210717
  Serious: Yes (Other)
  Sender: FDA-Public Use
  Company Number: NVSC2021US097129

PATIENT
  Sex: Female

DRUGS (2)
  1. IBUPROFEN. [Suspect]
     Active Substance: IBUPROFEN
     Indication: MATERNAL EXPOSURE DURING PREGNANCY
     Dosage: UNK (AS INITIAL THERAPY)
     Route: 065
  2. INDOMETHACIN. [Suspect]
     Active Substance: INDOMETHACIN
     Indication: MATERNAL EXPOSURE DURING PREGNANCY
     Dosage: UNK (LOW?DOSE)
     Route: 065

REACTIONS (3)
  - Contraindicated product administered [Unknown]
  - Oligohydramnios [Unknown]
  - Maternal exposure during pregnancy [Unknown]
